FAERS Safety Report 16354501 (Version 2)
Quarter: 2019Q3

REPORT INFORMATION
  Report Type: Spontaneous
  Country: US (occurrence: US)
  Receive Date: 20190524
  Receipt Date: 20190702
  Transmission Date: 20191004
  Serious: No
  Sender: FDA-Public Use
  Company Number: US-AMGEN-USASP2019078733

PATIENT
  Age: 64 Year
  Sex: Female
  Weight: 94.5 kg

DRUGS (4)
  1. SENSIPAR [Suspect]
     Active Substance: CINACALCET HYDROCHLORIDE
     Indication: SECONDARY HYPOTHYROIDISM
  2. PARSABIV [Suspect]
     Active Substance: ETELCALCETIDE HYDROCHLORIDE
     Indication: CHRONIC KIDNEY DISEASE
     Dosage: 15 MILLIGRAM, 3 TIMES/WK
     Route: 065
     Dates: start: 2019, end: 2019
  3. SENSIPAR [Suspect]
     Active Substance: CINACALCET HYDROCHLORIDE
     Indication: CHRONIC KIDNEY DISEASE
     Dosage: UNK
     Route: 048
     Dates: start: 20190119, end: 201905
  4. PARSABIV [Suspect]
     Active Substance: ETELCALCETIDE HYDROCHLORIDE
     Indication: SECONDARY HYPOTHYROIDISM
     Dosage: 7.5 MILLIGRAM, 3 TIMES/WK
     Route: 065
     Dates: start: 2019

REACTIONS (1)
  - Labelled drug-drug interaction medication error [Unknown]

NARRATIVE: CASE EVENT DATE: 20190418
